FAERS Safety Report 10991181 (Version 2)
Quarter: 2015Q2

REPORT INFORMATION
  Report Type: Spontaneous
  Country: US (occurrence: US)
  Receive Date: 20150406
  Receipt Date: 20150428
  Transmission Date: 20150821
  Serious: Yes (Life-Threatening, Other)
  Sender: FDA-Public Use
  Company Number: US-JNJFOC-20150321506

PATIENT
  Age: 70 Year
  Sex: Female
  Weight: 83.01 kg

DRUGS (35)
  1. ALBUTEROL. [Concomitant]
     Active Substance: ALBUTEROL
     Route: 065
  2. ACETAMINOPHEN. [Concomitant]
     Active Substance: ACETAMINOPHEN
     Route: 065
  3. ALLOPURINOL. [Concomitant]
     Active Substance: ALLOPURINOL
     Route: 048
  4. VICTOZA [Concomitant]
     Active Substance: LIRAGLUTIDE
     Dosage: 1MG SUBCUTANEOUSLY ONCE A DAY
     Route: 058
  5. SODIUM CHLORIDE. [Concomitant]
     Active Substance: SODIUM CHLORIDE
     Dosage: 0.9% SOLUTION 250 ML WITH INFLIXIMAB 100MG SOLUTION , 500 EVERY 6 WEEKS
  6. ASA [Concomitant]
     Active Substance: ASPIRIN
     Route: 048
  7. SYNTHROID [Concomitant]
     Active Substance: LEVOTHYROXINE SODIUM
     Route: 048
     Dates: start: 20150216
  8. DIOVAN [Concomitant]
     Active Substance: VALSARTAN
     Route: 048
  9. TRAMADOL [Concomitant]
     Active Substance: TRAMADOL
     Route: 048
  10. FLUTICASONE SALMETEROL [Concomitant]
     Dosage: 250-50 MCG/DOSE INHALATION, INHALE, 2 PUFFS DAILY
     Route: 055
  11. GLUCOSAMINE [Concomitant]
     Active Substance: GLUCOSAMINE
     Dosage: 250-50 MCG/DOSE INHALATION, INHALE, 2 PUFFS DAILY
     Route: 055
  12. FUROSEMIDE. [Concomitant]
     Active Substance: FUROSEMIDE
     Route: 048
  13. ZOFRAN [Concomitant]
     Active Substance: ONDANSETRON HYDROCHLORIDE
     Route: 065
  14. GLIMEPIRIDE. [Concomitant]
     Active Substance: GLIMEPIRIDE
     Route: 048
  15. LIRAGLUTIDE [Concomitant]
     Active Substance: LIRAGLUTIDE
     Dosage: IN THE AM
     Route: 058
  16. MOMETASONE FUROATE. [Concomitant]
     Active Substance: MOMETASONE FUROATE
     Dosage: INTO EACH NOSTRIL AS NEEDED
     Route: 065
  17. XYZAL [Concomitant]
     Active Substance: LEVOCETIRIZINE DIHYDROCHLORIDE
     Dosage: 1 TABLET ORALLY ONCE A DAY(IN THE EVENING)
     Route: 048
     Dates: start: 20150319
  18. ADVAIR HFA [Concomitant]
     Active Substance: FLUTICASONE PROPIONATE\SALMETEROL XINAFOATE
     Dosage: 250MCG-50MCG
     Route: 055
  19. LEVEMIR [Concomitant]
     Active Substance: INSULIN DETEMIR
     Dosage: 100 U, 20 UNITS IN AM AND 10 UNITS AT NIGHT PM HIGH SUGARS
     Route: 065
     Dates: start: 20150204
  20. LANSOPRAZOLE. [Concomitant]
     Active Substance: LANSOPRAZOLE
     Route: 048
     Dates: start: 20141115
  21. LEVOTHYROXINE SODIUM. [Concomitant]
     Active Substance: LEVOTHYROXINE SODIUM
     Route: 065
  22. ROSUVASTATIN [Concomitant]
     Active Substance: ROSUVASTATIN
     Route: 048
  23. CRESTOR [Concomitant]
     Active Substance: ROSUVASTATIN CALCIUM
     Dosage: 1/2 TABLET
     Route: 048
  24. DULOXETINE [Concomitant]
     Active Substance: DULOXETINE
     Route: 065
  25. COENZYME Q10 [Concomitant]
     Active Substance: UBIDECARENONE
     Dosage: TAKE BY MOUTH DAILY
     Route: 048
  26. INSULIN DETEMIR [Concomitant]
     Active Substance: INSULIN DETEMIR
     Route: 058
  27. OMEGA 3 FATTY ACIDS [Concomitant]
     Active Substance: OMEGA-3 FATTY ACIDS
     Dosage: DAILY
     Route: 048
  28. PREDNISONE. [Concomitant]
     Active Substance: PREDNISONE
     Dosage: 1 1/2 TABLET DAILY OR AS DIRECTED
     Route: 048
  29. CHOLECALCIFEROL [Concomitant]
     Active Substance: CHOLECALCIFEROL
     Dosage: DAILY
     Route: 065
  30. NASONEX [Concomitant]
     Active Substance: MOMETASONE FUROATE
     Dosage: 2 SPRAYS INTRANSALLY ONCE A DAY
     Route: 045
  31. CALCIUM CITRATE [Concomitant]
     Active Substance: CALCIUM CITRATE
     Route: 048
  32. LEVOCETIRIZINE DIHYDROCHLORIDE. [Concomitant]
     Active Substance: LEVOCETIRIZINE DIHYDROCHLORIDE
     Route: 048
  33. VALSARTAN. [Concomitant]
     Active Substance: VALSARTAN
     Route: 048
  34. STELARA [Suspect]
     Active Substance: USTEKINUMAB
     Indication: PSORIATIC ARTHROPATHY
     Route: 058
     Dates: start: 201409
  35. INFLIXIMAB [Concomitant]
     Active Substance: INFLIXIMAB
     Dosage: 600 EVERY 6 WEEKS
     Route: 042

REACTIONS (1)
  - Atrioventricular block complete [Recovering/Resolving]

NARRATIVE: CASE EVENT DATE: 20150322
